FAERS Safety Report 5254441-3 (Version None)
Quarter: 2007Q1

REPORT INFORMATION
  Report Type: 
  Country: None (occurrence: None)
  Receive Date: 20070302
  Receipt Date: 20070221
  Transmission Date: 20070707
  Serious: Yes (Other)
  Sender: FDA-Public Use
  Company Number: GB-PFIZER INC-2007007471

PATIENT
  Age: 35 Year
  Sex: Male
  Weight: 89 kg

DRUGS (9)
  1. FRAGMIN [Suspect]
     Indication: PERIPHERAL EMBOLISM
     Route: 058
  2. ORAMORPH SR [Concomitant]
     Indication: PAIN
     Route: 048
  3. ORAMORPH SR [Concomitant]
     Indication: BACK PAIN
  4. DURAGESIC-100 [Concomitant]
     Indication: PAIN
     Route: 062
     Dates: start: 20060511
  5. DURAGESIC-100 [Concomitant]
     Indication: BACK PAIN
  6. DIAZEPAM [Concomitant]
     Indication: PANIC DISORDER
     Route: 048
  7. DIAZEPAM [Concomitant]
     Indication: AGITATION
  8. NITRAZEPAM [Concomitant]
     Indication: PANIC DISORDER
     Route: 048
  9. NITRAZEPAM [Concomitant]
     Indication: INSOMNIA

REACTIONS (9)
  - ABDOMINAL DISCOMFORT [None]
  - AGITATION [None]
  - ANXIETY [None]
  - BACK PAIN [None]
  - HYPOAESTHESIA [None]
  - INJECTION SITE HAEMATOMA [None]
  - MUSCULAR WEAKNESS [None]
  - PARAESTHESIA [None]
  - THROMBOSIS [None]
